FAERS Safety Report 14750684 (Version 1)
Quarter: 2018Q2

REPORT INFORMATION
  Report Type: Spontaneous
  Country: US (occurrence: US)
  Receive Date: 20180406
  Receipt Date: 20180406
  Transmission Date: 20180711
  Serious: Yes (Hospitalization)
  Sender: FDA-Public Use
  Company Number: None

PATIENT
  Age: 71 Year
  Sex: Female

DRUGS (22)
  1. ACTEMRA [Suspect]
     Active Substance: TOCILIZUMAB
     Indication: RHEUMATOID ARTHRITIS
     Route: 058
     Dates: start: 20141230
  2. NYSTOP POW 100000 [Concomitant]
     Dates: start: 20170512
  3. POT CHLORIDE TAB 10MEQ ER [Concomitant]
     Dates: start: 20180329
  4. TRAZODONE [Concomitant]
     Active Substance: TRAZODONE HYDROCHLORIDE
     Dates: start: 20180316
  5. VIXTOZA INJ 18MG/3ML [Concomitant]
  6. DILTIAZEM CAP 360MG ER [Concomitant]
     Dates: start: 20170521
  7. FUROSEMIDE TAB 20MG [Concomitant]
     Dates: start: 20120908
  8. ALBUTEROL NEB 0.5% [Concomitant]
     Dates: start: 20180320
  9. BD PEN NEEDL MIS 31GX5/16 [Concomitant]
     Dates: start: 20170607
  10. CALCIUM + D3 TAB 600MG [Concomitant]
     Dates: start: 20170220
  11. LYRICA CAP 75MG [Concomitant]
     Dates: start: 20180401
  12. ELIQUIS TAB 5MG [Concomitant]
     Dates: start: 20180115
  13. METFORMIN TAB 1000MG [Concomitant]
     Dates: start: 20171114
  14. OXYCOD/APAP TAB 7.5-325 [Concomitant]
     Dates: start: 20170322
  15. ACCU-CHEK TES AVIVA PL [Concomitant]
     Dates: start: 20180404
  16. FLUOXETINE CAP 20MG [Concomitant]
     Dates: start: 20180329
  17. FOLIC ACID TAB 1MG [Concomitant]
     Dates: start: 20170220
  18. AMLODIPINE TAB 10MG [Concomitant]
     Dates: start: 20180215
  19. METHOTREXATE TAB 2.5MG [Concomitant]
     Active Substance: METHOTREXATE
     Dates: start: 20120921
  20. NOVOLOG INJ FLEXPEN [Concomitant]
     Dates: start: 20170515
  21. OXYCONTIN TAB 20MG ER [Concomitant]
     Dates: start: 20180214
  22. PREDNISONE TAB 10MG [Concomitant]
     Active Substance: PREDNISONE
     Dates: start: 20180319

REACTIONS (2)
  - Pneumonia [None]
  - Drug dose omission [None]

NARRATIVE: CASE EVENT DATE: 20180405
